FAERS Safety Report 4377389-5 (Version None)
Quarter: 2004Q2

REPORT INFORMATION
  Report Type: 
  Country: None (occurrence: None)
  Receive Date: 20040615
  Receipt Date: 20030703
  Transmission Date: 20050107
  Serious: Yes (Hospitalization)
  Sender: FDA-Public Use
  Company Number: JP-BRISTOL-MYERS SQUIBB COMPANY-12318432

PATIENT
  Age: 60 Year
  Sex: Male

DRUGS (4)
  1. ZERIT [Suspect]
     Indication: ACQUIRED IMMUNODEFICIENCY SYNDROME
     Dosage: INITIATED AT 60 MG DAILY, INCREASED TO 80 MG DAILY ON 10-JUN-2002
     Route: 048
     Dates: start: 20010823, end: 20021218
  2. STOCRIN CAPS [Suspect]
     Indication: ACQUIRED IMMUNODEFICIENCY SYNDROME
     Route: 048
     Dates: start: 20010823, end: 20021218
  3. EPIVIR [Suspect]
     Indication: ACQUIRED IMMUNODEFICIENCY SYNDROME
     Route: 048
     Dates: start: 20010823, end: 20021218
  4. DENOSINE [Concomitant]
     Route: 048
     Dates: start: 20011009, end: 20020609

REACTIONS (9)
  - ANOREXIA [None]
  - BLOOD LACTIC ACID INCREASED [None]
  - DIPLOPIA [None]
  - DYSPEPSIA [None]
  - HALLUCINATION, AUDITORY [None]
  - MEMORY IMPAIRMENT [None]
  - NAUSEA [None]
  - NEUROMYOPATHY [None]
  - VOMITING [None]
